FAERS Safety Report 5104017-3 (Version None)
Quarter: 2006Q3

REPORT INFORMATION
  Report Type: 
  Country: None (occurrence: None)
  Receive Date: 20060908
  Receipt Date: 20060828
  Transmission Date: 20061208
  Serious: Yes (Other)
  Sender: FDA-Public Use
  Company Number: 2006105307

PATIENT
  Age: 63 Year
  Sex: Male
  Weight: 88.905 kg

DRUGS (7)
  1. LIPITOR [Suspect]
     Indication: PROPHYLAXIS
     Dosage: 40 MG (1 IN 1 D)
     Dates: start: 20050101
  2. ALL OTHER THERAPEUTIC PRODUCTS (ALL OTHER THERAPEUTIC PRODUCTS) [Concomitant]
  3. INDOMETHACIN [Concomitant]
  4. ASPIRIN [Concomitant]
  5. ZETIA [Concomitant]
  6. ALVALIDE (HYDROCHLOROTHIAZIDE, IRBESARTAN) [Concomitant]
  7. TAMSULOSIN HYDROCHLORIDE (TAMSULOSIN HYDROCHLORIDE) [Concomitant]

REACTIONS (2)
  - CORONARY ARTERIAL STENT INSERTION [None]
  - MUSCLE SPASMS [None]
